FAERS Safety Report 4417370-0 (Version None)
Quarter: 2004Q3

REPORT INFORMATION
  Report Type: 
  Country: None (occurrence: None)
  Receive Date: 20040802
  Receipt Date: 20040719
  Transmission Date: 20050211
  Serious: Yes (Hospitalization)
  Sender: FDA-Public Use
  Company Number: US-JNJFOC-20040506226

PATIENT
  Age: 68 Year
  Sex: Female
  Weight: 74.3899 kg

DRUGS (5)
  1. REMICADE [Suspect]
     Indication: RHEUMATOID ARTHRITIS
     Dosage: SEE IMAGE
     Route: 042
     Dates: start: 20021001
  2. REMICADE [Suspect]
     Indication: RHEUMATOID ARTHRITIS
     Dosage: SEE IMAGE
     Route: 042
     Dates: start: 20030901
  3. PROZAC [Concomitant]
  4. INSULIN [Concomitant]
  5. METHOTREXATE [Concomitant]

REACTIONS (6)
  - CELLULITIS [None]
  - DRUG INEFFECTIVE [None]
  - DYSPNOEA [None]
  - JOINT SWELLING [None]
  - OXYGEN SATURATION DECREASED [None]
  - WEIGHT DECREASED [None]
